FAERS Safety Report 13367627 (Version 5)
Quarter: 2018Q2

REPORT INFORMATION
  Report Type: Report from Study
  Country: US (occurrence: US)
  Receive Date: 20170324
  Receipt Date: 20180426
  Transmission Date: 20180711
  Serious: Yes (Other)
  Sender: FDA-Public Use
  Company Number: PHHY2016US175421

PATIENT
  Age: 53 Year
  Sex: Female

DRUGS (3)
  1. GILENYA [Suspect]
     Active Substance: FINGOLIMOD HYDROCHLORIDE
     Indication: MULTIPLE SCLEROSIS
     Dosage: UNK UNK, QD
     Route: 048
  2. AMITRIPTYLINE [Concomitant]
     Active Substance: AMITRIPTYLINE
     Indication: INSOMNIA
     Dosage: UNK
     Route: 065
     Dates: start: 20180326
  3. METHYLPHENIDATE. [Concomitant]
     Active Substance: METHYLPHENIDATE
     Indication: FATIGUE
     Dosage: 5 MG, BID
     Route: 065
     Dates: start: 20161114, end: 20170208

REACTIONS (28)
  - Fall [Recovered/Resolved]
  - Bronchitis [Recovered/Resolved]
  - White blood cell count decreased [Recovered/Resolved]
  - Migraine [Recovered/Resolved]
  - Hypertension [Recovered/Resolved]
  - Infusion related reaction [Unknown]
  - Muscular weakness [Recovered/Resolved]
  - Limb discomfort [Unknown]
  - Diarrhoea [Recovered/Resolved]
  - Paraesthesia [Unknown]
  - Upper respiratory tract infection [Unknown]
  - Cough [Recovered/Resolved]
  - Micturition urgency [Unknown]
  - Aspartate aminotransferase increased [Recovered/Resolved]
  - Lymphocyte count decreased [Recovered/Resolved]
  - Nausea [Recovered/Resolved]
  - Ataxia [Unknown]
  - Fatigue [Unknown]
  - Abdominal distension [Recovered/Resolved]
  - Blood alkaline phosphatase increased [Recovered/Resolved]
  - Alanine aminotransferase increased [Recovered/Resolved]
  - Pyrexia [Recovered/Resolved]
  - Sinusitis [Recovered/Resolved]
  - Nasopharyngitis [Recovered/Resolved]
  - Fall [Recovered/Resolved]
  - Hepatic cyst [Unknown]
  - Dry mouth [Recovered/Resolved]
  - Band sensation [Recovered/Resolved]

NARRATIVE: CASE EVENT DATE: 20161114
